FAERS Safety Report 10818493 (Version 1)
Quarter: 2015Q1

REPORT INFORMATION
  Report Type: Report from Study
  Country: US (occurrence: None)
  Receive Date: 20150213
  Receipt Date: 20150213
  Transmission Date: 20150721
  Serious: Yes (Hospitalization)
  Sender: FDA-Public Use
  Company Number: 2015BI002200

PATIENT
  Age: 61 Year
  Sex: Male

DRUGS (1)
  1. AVONEX [Suspect]
     Active Substance: INTERFERON BETA-1A
     Indication: MULTIPLE SCLEROSIS
     Route: 030
     Dates: start: 19970101, end: 20071017

REACTIONS (6)
  - Dysstasia [None]
  - Neurogenic bladder [None]
  - Scoliosis [None]
  - Abasia [None]
  - Rheumatoid arthritis [None]
  - Condition aggravated [None]

NARRATIVE: CASE EVENT DATE: 201410
